FAERS Safety Report 9343465 (Version 1)
Quarter: 2013Q2

REPORT INFORMATION
  Report Type: Spontaneous
  Country: US (occurrence: US)
  Receive Date: 20130612
  Receipt Date: 20130612
  Transmission Date: 20140414
  Serious: No
  Sender: FDA-Public Use
  Company Number: US-BIOGENIDEC-2013BI050904

PATIENT
  Sex: Male

DRUGS (2)
  1. AVONEX [Suspect]
     Indication: MULTIPLE SCLEROSIS
     Route: 030
     Dates: start: 20110120, end: 20120419
  2. AMPYRA [Concomitant]
     Indication: GAIT DISTURBANCE

REACTIONS (5)
  - Abasia [Recovered/Resolved]
  - Loss of control of legs [Not Recovered/Not Resolved]
  - Central nervous system lesion [Not Recovered/Not Resolved]
  - Muscular weakness [Recovered/Resolved]
  - Pyrexia [Unknown]
